FAERS Safety Report 8450104-1 (Version None)
Quarter: 2012Q2

REPORT INFORMATION
  Report Type: 
  Country: None (occurrence: None)
  Receive Date: 20120614
  Receipt Date: 20120614
  Transmission Date: 20120825
  Serious: No
  Sender: FDA-Public Use
  Company Number: None

PATIENT
  Sex: Male
  Weight: 361 kg

DRUGS (1)
  1. TOPIRAMATE [Suspect]
     Indication: COMPLEX PARTIAL SEIZURES
     Dosage: 100MG BID; 50MG 1 TAB AM 1 1/2 PM
     Dates: start: 20110801

REACTIONS (4)
  - AFFECTIVE DISORDER [None]
  - PRODUCT SUBSTITUTION ISSUE [None]
  - CONVULSION [None]
  - ABNORMAL BEHAVIOUR [None]
